FAERS Safety Report 18054618 (Version 1)
Quarter: 2020Q3

REPORT INFORMATION
  Report Type: Spontaneous
  Country: US (occurrence: US)
  Receive Date: 20200722
  Receipt Date: 20200722
  Transmission Date: 20201103
  Serious: Yes (Hospitalization)
  Sender: FDA-Public Use
  Company Number: None

PATIENT
  Age: 73 Year
  Sex: Male
  Weight: 121.56 kg

DRUGS (1)
  1. ERTAPENEM (ERTAPENEM 1GM/VIL INJ) [Suspect]
     Active Substance: ERTAPENEM
     Indication: ARTHRITIS INFECTIVE
     Route: 042
     Dates: start: 20191129, end: 20200115

REACTIONS (6)
  - Anaemia [None]
  - Neutropenia [None]
  - Leukopenia [None]
  - Respiratory failure [None]
  - Cardiac arrest [None]
  - Generalised oedema [None]

NARRATIVE: CASE EVENT DATE: 20200115
